FAERS Safety Report 7319685-5 (Version None)
Quarter: 2011Q1

REPORT INFORMATION
  Report Type: 
  Country: None (occurrence: None)
  Receive Date: 20110228
  Receipt Date: 20100728
  Transmission Date: 20110831
  Serious: Yes (Hospitalization)
  Sender: FDA-Public Use
  Company Number: A0872738A

PATIENT
  Sex: Female

DRUGS (5)
  1. PRENATAL VITAMINS [Concomitant]
  2. LAMICTAL [Suspect]
     Dosage: 200MG TWICE PER DAY
     Route: 048
  3. DIAZEPAM [Concomitant]
  4. MAGNESIUM OXIDE [Concomitant]
  5. LORAZEPAM [Concomitant]

REACTIONS (2)
  - CONVULSION [None]
  - SOMNOLENCE [None]
